FAERS Safety Report 20149538 (Version 1)
Quarter: 2021Q4

REPORT INFORMATION
  Report Type: Spontaneous
  Country: CN (occurrence: CN)
  Receive Date: 20211205
  Receipt Date: 20211205
  Transmission Date: 20220303
  Serious: Yes (Hospitalization)
  Sender: FDA-Public Use
  Company Number: CN-ABBVIE-21K-035-4182521-00

PATIENT
  Age: 63 Year
  Sex: Male
  Weight: 45 kg

DRUGS (3)
  1. VALPROATE SODIUM [Suspect]
     Active Substance: VALPROATE SODIUM
     Indication: Seizure prophylaxis
     Route: 041
     Dates: start: 20201014, end: 20201015
  2. VALPROATE SODIUM [Suspect]
     Active Substance: VALPROATE SODIUM
     Route: 041
     Dates: start: 20201015, end: 20201018
  3. SODIUM CHLORIDE [Concomitant]
     Active Substance: SODIUM CHLORIDE
     Indication: Product used for unknown indication
     Dates: start: 20201014, end: 20201015

REACTIONS (1)
  - Poverty of speech [Recovering/Resolving]

NARRATIVE: CASE EVENT DATE: 20201017
